FAERS Safety Report 13469144 (Version 1)
Quarter: 2017Q2

REPORT INFORMATION
  Report Type: Spontaneous
  Country: GB (occurrence: GB)
  Receive Date: 20170421
  Receipt Date: 20170421
  Transmission Date: 20170830
  Serious: Yes (Hospitalization)
  Sender: FDA-Public Use
  Company Number: GB-MYLANLABS-2017M1024088

PATIENT

DRUGS (5)
  1. ASPIRIN. [Concomitant]
     Active Substance: ASPIRIN
  2. BISOPROLOL [Concomitant]
     Active Substance: BISOPROLOL
  3. PERINDOPRIL [Concomitant]
     Active Substance: PERINDOPRIL
  4. SIMVASTATIN. [Concomitant]
     Active Substance: SIMVASTATIN
  5. INDAPAMIDE. [Suspect]
     Active Substance: INDAPAMIDE
     Indication: HYPERTENSION
     Route: 048
     Dates: start: 20170321, end: 20170331

REACTIONS (7)
  - Rash erythematous [Not Recovered/Not Resolved]
  - Lip swelling [Unknown]
  - Gait disturbance [Unknown]
  - Pyrexia [Unknown]
  - Eye swelling [Unknown]
  - Confusional state [Unknown]
  - Skin warm [Unknown]

NARRATIVE: CASE EVENT DATE: 20170331
